FAERS Safety Report 26098124 (Version 1)
Quarter: 2025Q4

REPORT INFORMATION
  Report Type: Spontaneous
  Country: US (occurrence: US)
  Receive Date: 20251127
  Receipt Date: 20251127
  Transmission Date: 20260117
  Serious: Yes (Life-Threatening, Hospitalization, Other)
  Sender: TEVA
  Company Number: US-TEVA-VS-3395234

PATIENT
  Age: 40 Year

DRUGS (1)
  1. ACTIQ [Suspect]
     Active Substance: FENTANYL CITRATE
     Indication: Back pain
     Route: 065
     Dates: start: 2002, end: 2011

REACTIONS (15)
  - Drug dependence [Unknown]
  - Impaired quality of life [Unknown]
  - Dry mouth [Unknown]
  - Overdose [Unknown]
  - Tooth fracture [Unknown]
  - Tooth loss [Unknown]
  - Tooth injury [Not Recovered/Not Resolved]
  - General physical health deterioration [Unknown]
  - Socioeconomic precarity [Unknown]
  - Hospitalisation [Unknown]
  - Depression [Unknown]
  - Emotional distress [Not Recovered/Not Resolved]
  - Off label use [Unknown]
  - Pain [Unknown]
  - Respiratory depression [Unknown]
